FAERS Safety Report 7718143-3 (Version None)
Quarter: 2011Q3

REPORT INFORMATION
  Report Type: 
  Country: None (occurrence: None)
  Receive Date: 20110830
  Receipt Date: 20110825
  Transmission Date: 20111222
  Serious: Yes (Disabling)
  Sender: FDA-Public Use
  Company Number: FI-PFIZER INC-2011196970

PATIENT
  Age: 62 Year
  Sex: Male

DRUGS (4)
  1. SULFASALAZINE [Suspect]
     Indication: RHEUMATOID ARTHRITIS
     Dosage: 500 MG, UNK
     Route: 048
     Dates: start: 20110119, end: 20110519
  2. BISOPROLOL FUMARATE [Concomitant]
     Dosage: 5 MG, 1X/DAY
     Route: 048
  3. COZAAR [Concomitant]
     Dosage: 100 MG, 1X/DAY
     Route: 048
  4. LAMICTAL [Concomitant]
     Dosage: 50 MG, 2X/DAY
     Route: 048

REACTIONS (2)
  - POLYNEUROPATHY [None]
  - BALANCE DISORDER [None]
